FAERS Safety Report 15715735 (Version 1)
Quarter: 2018Q4

REPORT INFORMATION
  Report Type: Spontaneous
  Country: US (occurrence: US)
  Receive Date: 20181212
  Receipt Date: 20181212
  Transmission Date: 20190205
  Serious: Yes (Life-Threatening, Hospitalization)
  Sender: FDA-Public Use
  Company Number: US-MYLANLABS-2018M1090331

PATIENT
  Age: 41 Year
  Sex: Male
  Weight: 133 kg

DRUGS (6)
  1. CYANOKIT [Concomitant]
     Active Substance: HYDROXOCOBALAMIN
     Indication: VASODILATATION
     Dosage: OVER 15 MINUTES
     Route: 042
  2. METHYLENE BLUE. [Concomitant]
     Active Substance: METHYLENE BLUE
     Indication: HAEMODYNAMIC INSTABILITY
     Route: 042
  3. VASOPRESSIN. [Suspect]
     Active Substance: VASOPRESSIN
     Indication: VASOPLEGIA SYNDROME
     Dosage: 0.04U/MIN
     Route: 041
  4. METHYLENE BLUE. [Concomitant]
     Active Substance: METHYLENE BLUE
     Dosage: 0.75 MILLIGRAM/KILOGRAM
     Route: 042
  5. NOREPINEPHRINE. [Suspect]
     Active Substance: NOREPINEPHRINE
     Indication: VASOPLEGIA SYNDROME
     Dosage: 0.45 MICROGRAM/KILOGRAM, QMINUTE
     Route: 041
  6. CYANOKIT [Concomitant]
     Active Substance: HYDROXOCOBALAMIN
     Route: 042

REACTIONS (1)
  - Drug ineffective [Unknown]
